FAERS Safety Report 15578494 (Version 3)
Quarter: 2019Q1

REPORT INFORMATION
  Report Type: Spontaneous
  Country: JP (occurrence: JP)
  Receive Date: 20181102
  Receipt Date: 20190315
  Transmission Date: 20190417
  Serious: Yes (Hospitalization, Other)
  Sender: FDA-Public Use
  Company Number: JP-TEVA-2018-JP-952720

PATIENT
  Age: 73 Year
  Sex: Male
  Weight: 80.5 kg

DRUGS (14)
  1. MAGNESIUM OXIDE. [Concomitant]
     Active Substance: MAGNESIUM OXIDE
     Route: 065
     Dates: start: 20130110
  2. AZILECT [Suspect]
     Active Substance: RASAGILINE MESYLATE
     Indication: PARKINSON^S DISEASE
     Dosage: 1 MILLIGRAM DAILY;
     Route: 048
     Dates: start: 20180628, end: 20180807
  3. BAYASPIRIN [Concomitant]
     Active Substance: ASPIRIN
     Route: 065
  4. LIVALO [Concomitant]
     Active Substance: PITAVASTATIN CALCIUM
     Route: 065
  5. DEPAS (ETIZOLAM) [Concomitant]
     Active Substance: ETIZOLAM
     Route: 065
     Dates: start: 20140924
  6. PARIET [Concomitant]
     Active Substance: RABEPRAZOLE SODIUM
     Route: 065
  7. ARTIST [Concomitant]
     Active Substance: CARVEDILOL
     Route: 065
  8. ZETIA [Concomitant]
     Active Substance: EZETIMIBE
     Route: 065
  9. SIGMART [Concomitant]
     Active Substance: NICORANDIL
     Route: 065
  10. MENESIT [Concomitant]
     Active Substance: CARBIDOPA\LEVODOPA
     Route: 065
     Dates: start: 20120604
  11. CYMBALTA [Concomitant]
     Active Substance: DULOXETINE HYDROCHLORIDE
     Route: 065
     Dates: start: 20160831
  12. TRAZENTA [Concomitant]
     Active Substance: LINAGLIPTIN
     Route: 065
     Dates: start: 20130516
  13. NU-LOTAN [Concomitant]
     Active Substance: LOSARTAN POTASSIUM
     Route: 065
  14. DIART [Concomitant]
     Active Substance: AZOSEMIDE
     Route: 065

REACTIONS (5)
  - Loss of consciousness [Recovered/Resolved]
  - Syncope [Recovered/Resolved]
  - Motor dysfunction [Recovered/Resolved]
  - Fall [Unknown]
  - Contusion [Recovered/Resolved]

NARRATIVE: CASE EVENT DATE: 20180628
